FAERS Safety Report 19778219 (Version 1)
Quarter: 2021Q3

REPORT INFORMATION
  Report Type: Report from Study
  Country: US (occurrence: US)
  Receive Date: 20210902
  Receipt Date: 20210902
  Transmission Date: 20211014
  Serious: Yes (Other)
  Sender: FDA-Public Use
  Company Number: US-GLAXOSMITHKLINE-US2020AMR225350

PATIENT
  Sex: Female

DRUGS (4)
  1. NIRAPARIB [Suspect]
     Active Substance: NIRAPARIB
     Dosage: 300 MG, QD
     Route: 048
  2. NIRAPARIB [Suspect]
     Active Substance: NIRAPARIB
     Dosage: 300 MG, QD
  3. NIRAPARIB [Suspect]
     Active Substance: NIRAPARIB
     Indication: OVARIAN CANCER
     Dosage: 300 MG, QD
     Dates: start: 20170907
  4. NIRAPARIB [Suspect]
     Active Substance: NIRAPARIB
     Dosage: 300 MG, QD
     Route: 048
     Dates: end: 20210824

REACTIONS (10)
  - Abdominal discomfort [Not Recovered/Not Resolved]
  - Laboratory test abnormal [Unknown]
  - Flatulence [Not Recovered/Not Resolved]
  - Carbohydrate antigen 125 increased [Unknown]
  - Headache [Not Recovered/Not Resolved]
  - Blood triglycerides increased [Not Recovered/Not Resolved]
  - Hypertension [Recovering/Resolving]
  - Product dose omission issue [Unknown]
  - Malignant neoplasm progression [Unknown]
  - Dysgeusia [Not Recovered/Not Resolved]
